FAERS Safety Report 26087145 (Version 1)
Quarter: 2025Q4

REPORT INFORMATION
  Report Type: Spontaneous
  Country: US (occurrence: None)
  Receive Date: 20251124
  Receipt Date: 20251124
  Transmission Date: 20260118
  Serious: Yes (Other)
  Sender: FDA-CTU
  Company Number: None

PATIENT
  Age: 36 Year
  Sex: Male
  Weight: 86.18 kg

DRUGS (17)
  1. ADDERALL [Suspect]
     Active Substance: AMPHETAMINE ASPARTATE\AMPHETAMINE SULFATE\DEXTROAMPHETAMINE SACCHARATE\DEXTROAMPHETAMINE SULFATE
     Indication: Attention deficit hyperactivity disorder
     Dosage: 30 PILLS ONCE BY MONTH
     Route: 048
     Dates: start: 20181107, end: 20181207
  2. ADDERALL [Suspect]
     Active Substance: AMPHETAMINE ASPARTATE\AMPHETAMINE SULFATE\DEXTROAMPHETAMINE SACCHARATE\DEXTROAMPHETAMINE SULFATE
     Indication: Nausea
  3. ADDERALL [Suspect]
     Active Substance: AMPHETAMINE ASPARTATE\AMPHETAMINE SULFATE\DEXTROAMPHETAMINE SACCHARATE\DEXTROAMPHETAMINE SULFATE
     Indication: Vision blurred
  4. CONCERTA [Suspect]
     Active Substance: METHYLPHENIDATE HYDROCHLORIDE
     Indication: Anxiety
     Dates: start: 201502, end: 201507
  5. CONCERTA [Suspect]
     Active Substance: METHYLPHENIDATE HYDROCHLORIDE
     Indication: Palpitations
  6. RITALIN [Suspect]
     Active Substance: METHYLPHENIDATE HYDROCHLORIDE
     Indication: Gastrointestinal disorder
     Dates: start: 201203, end: 201206
  7. RITALIN [Suspect]
     Active Substance: METHYLPHENIDATE HYDROCHLORIDE
     Indication: Decreased appetite
  8. FOCALIN [Suspect]
     Active Substance: DEXMETHYLPHENIDATE HYDROCHLORIDE
     Indication: Insomnia
     Dates: start: 201507, end: 201512
  9. FOCALIN [Suspect]
     Active Substance: DEXMETHYLPHENIDATE HYDROCHLORIDE
  10. STRATTERA [Suspect]
     Active Substance: ATOMOXETINE HYDROCHLORIDE
     Indication: Fatigue
     Dates: start: 201601, end: 201603
  11. STRATTERA [Suspect]
     Active Substance: ATOMOXETINE HYDROCHLORIDE
     Indication: Dizziness
  12. STRATTERA [Suspect]
     Active Substance: ATOMOXETINE HYDROCHLORIDE
     Indication: Nausea
  13. INTUNIV [Suspect]
     Active Substance: GUANFACINE HYDROCHLORIDE
     Dates: start: 201604, end: 201605
  14. INTUNIV [Suspect]
     Active Substance: GUANFACINE HYDROCHLORIDE
  15. QUETIAPINE [Concomitant]
     Active Substance: QUETIAPINE
  16. Doxepin 75 [Concomitant]
  17. Vyaanse 60 [Concomitant]

REACTIONS (11)
  - Headache [None]
  - Nausea [None]
  - Vision blurred [None]
  - Anxiety [None]
  - Palpitations [None]
  - Gastrointestinal disorder [None]
  - Decreased appetite [None]
  - Insomnia [None]
  - Hypertension [None]
  - Dizziness [None]
  - Sedation [None]
